FAERS Safety Report 7198017-X (Version None)
Quarter: 2010Q4

REPORT INFORMATION
  Report Type: 
  Country: None (occurrence: None)
  Receive Date: 20101227
  Receipt Date: 20101015
  Transmission Date: 20110411
  Serious: Yes (Hospitalization)
  Sender: FDA-Public Use
  Company Number: US-BAYER-201022156NA

PATIENT
  Sex: Female
  Weight: 102.27 kg

DRUGS (10)
  1. YAZ [Suspect]
     Indication: PAIN
     Route: 048
     Dates: start: 20080101, end: 20080501
  2. YAZ [Suspect]
     Indication: ACNE
  3. YASMIN [Suspect]
     Indication: ACNE
     Route: 048
     Dates: start: 20070724, end: 20080101
  4. YASMIN [Suspect]
     Indication: CONTRACEPTION
  5. ATIVAN [Concomitant]
     Indication: ANXIETY
  6. CLOTRIMAZOLE [Concomitant]
     Indication: RASH
     Dates: start: 20071001, end: 20081001
  7. TRAZODONE [Concomitant]
     Indication: SLEEP DISORDER THERAPY
     Dates: start: 20080401, end: 20080501
  8. CLINDAMYCIN [Concomitant]
     Indication: ACNE
     Dates: start: 20080201, end: 20080701
  9. PROPRANOLOL [Concomitant]
     Indication: PAIN
     Dates: start: 20080501
  10. TYLENOL W/ CODEINE [Concomitant]
     Dates: start: 20080401

REACTIONS (5)
  - CHEST DISCOMFORT [None]
  - DEEP VEIN THROMBOSIS [None]
  - DYSPNOEA [None]
  - PAIN IN EXTREMITY [None]
  - PULMONARY EMBOLISM [None]
